FAERS Safety Report 9399388 (Version 4)
Quarter: 2015Q1

REPORT INFORMATION
  Report Type: Spontaneous
  Country: US (occurrence: US)
  Receive Date: 20130715
  Receipt Date: 20150122
  Transmission Date: 20150721
  Serious: No
  Sender: FDA-Public Use
  Company Number: US-PFIZER INC-2013201775

PATIENT
  Age: 43 Year
  Sex: Female
  Weight: 78.46 kg

DRUGS (1)
  1. ELELYSO [Suspect]
     Active Substance: TALIGLUCERASE ALFA
     Indication: GAUCHER^S DISEASE
     Dosage: 4800 UNITS EVERY 2 WEEKS
     Route: 042
     Dates: start: 20130522

REACTIONS (3)
  - Headache [Recovered/Resolved]
  - Atypical pneumonia [Recovering/Resolving]
  - Malaise [Recovering/Resolving]

NARRATIVE: CASE EVENT DATE: 20130708
